FAERS Safety Report 5053603-8 (Version None)
Quarter: 2006Q3

REPORT INFORMATION
  Report Type: 
  Country: None (occurrence: None)
  Receive Date: 20060712
  Receipt Date: 20040722
  Transmission Date: 20061208
  Serious: Yes (Hospitalization, Other)
  Sender: FDA-Public Use
  Company Number: FRWYE059707JUL06

PATIENT
  Age: 53 Year
  Sex: Male

DRUGS (1)
  1. RAPAMUNE [Suspect]
     Indication: PROPHYLAXIS AGAINST TRANSPLANT REJECTION
     Dosage: 4 MG TOTAL DAILY AT THE TIME OF THE EVENT, ORAL
     Route: 048
     Dates: start: 20030413, end: 20030730

REACTIONS (1)
  - HYDROCELE [None]
